FAERS Safety Report 23339019 (Version 1)
Quarter: 2023Q4

REPORT INFORMATION
  Report Type: Spontaneous
  Country: RU (occurrence: None)
  Receive Date: 20231226
  Receipt Date: 20231226
  Transmission Date: 20240110
  Serious: Yes (Other)
  Sender: FDA-Public Use
  Company Number: 2023A292587

PATIENT
  Age: 13 Year
  Sex: Female
  Weight: 65 kg

DRUGS (1)
  1. KOSELUGO [Suspect]
     Active Substance: SELUMETINIB
     Indication: Neoplasm
     Route: 048
     Dates: start: 20230720

REACTIONS (4)
  - Urticaria [Recovering/Resolving]
  - Decreased appetite [Recovering/Resolving]
  - Tachycardia [Recovering/Resolving]
  - Blood pressure increased [Recovering/Resolving]

NARRATIVE: CASE EVENT DATE: 20230721
